FAERS Safety Report 6496931-1 (Version None)
Quarter: 2009Q4

REPORT INFORMATION
  Report Type: 
  Country: None (occurrence: None)
  Receive Date: 20091215
  Receipt Date: 20091211
  Transmission Date: 20100525
  Serious: Yes (Death, Life-Threatening, Hospitalization)
  Sender: FDA-Public Use
  Company Number: IT-WYE-H08303209

PATIENT
  Sex: Male
  Weight: 72.2 kg

DRUGS (2)
  1. GEMTUZUMAB OZOGAMICIN [Suspect]
     Indication: ACUTE MYELOID LEUKAEMIA
     Dosage: ACTUAL DOSE 11 MG; CUMULATIVE DOSE 11 MG
     Route: 042
     Dates: start: 20090128, end: 20090128
  2. ISONIAZID [Concomitant]
     Indication: ANTIBIOTIC PROPHYLAXIS
     Dosage: UNKNOWN

REACTIONS (3)
  - CARDIAC FAILURE [None]
  - ENTEROCOCCAL INFECTION [None]
  - PNEUMONIA [None]
